FAERS Safety Report 8542096 (Version 2)
Quarter: 2012Q4

REPORT INFORMATION
  Report Type: Report from Study
  Country: DE (occurrence: DE)
  Receive Date: 20120502
  Receipt Date: 20121020
  Transmission Date: 20130627
  Serious: Yes (Hospitalization)
  Sender: FDA-Public Use
  Company Number: DE-ABBOTT-11P-062-0873912-00

PATIENT
  Age: 44 Year
  Sex: Male
  Weight: 88 kg

DRUGS (2)
  1. HUMIRA 40 MG/0.8 ML PEN [Suspect]
     Indication: PSORIATIC ARTHROPATHY
     Route: 058
     Dates: start: 20080630, end: 20110815
  2. DICLOFENAC [Concomitant]
     Indication: PRODUCT USED FOR UNKNOWN INDICATION

REACTIONS (8)
  - Aortic aneurysm [Recovered/Resolved]
  - Cardiac valve disease [Recovered/Resolved]
  - Alpha haemolytic streptococcal infection [Recovering/Resolving]
  - Intervertebral discitis [Recovering/Resolving]
  - Septic embolus [Recovering/Resolving]
  - Septic embolus [Recovering/Resolving]
  - Sepsis [Recovering/Resolving]
  - Psoriasis [Recovering/Resolving]
